FAERS Safety Report 23796938 (Version 1)
Quarter: 2024Q2

REPORT INFORMATION
  Report Type: Spontaneous
  Country: ES (occurrence: ES)
  Receive Date: 20240430
  Receipt Date: 20240430
  Transmission Date: 20240715
  Serious: Yes (Hospitalization)
  Sender: FDA-Public Use
  Company Number: ES-NOVITIUMPHARMA-2024ESNVP00664

PATIENT
  Age: 79 Year
  Sex: Female

DRUGS (1)
  1. PREDNISONE [Suspect]
     Active Substance: PREDNISONE
     Indication: Myeloproliferative neoplasm

REACTIONS (1)
  - Urinary tract infection [Unknown]
